FAERS Safety Report 8809102 (Version 1)
Quarter: 2012Q4

REPORT INFORMATION
  Report Type: 
  Country: US (occurrence: US)
  Receive Date: 20120926
  Receipt Date: 20120926
  Transmission Date: 20130627
  Serious: No
  Sender: FDA-Public Use
  Company Number: US-TEVA-361103USA

PATIENT
  Sex: Female

DRUGS (2)
  1. PLAN B ONE-STEP [Suspect]
     Indication: POST COITAL CONTRACEPTION
     Dosage: 1.5 Milligram Daily;
     Route: 048
     Dates: start: 20120916, end: 20120916
  2. GENERIC EMERGENCY CONTRACEPTIVE [Suspect]
     Indication: POST COITAL CONTRACEPTION

REACTIONS (2)
  - Menstruation irregular [Not Recovered/Not Resolved]
  - Vaginal haemorrhage [None]
